FAERS Safety Report 17076249 (Version 1)
Quarter: 2019Q4

REPORT INFORMATION
  Report Type: Spontaneous
  Country: US (occurrence: US)
  Receive Date: 20191126
  Receipt Date: 20191126
  Transmission Date: 20200122
  Serious: No
  Sender: FDA-Public Use
  Company Number: US-VIFOR (INTERNATIONAL) INC.-VIT-2019-12352

PATIENT
  Age: 63 Year
  Sex: Female

DRUGS (3)
  1. VELTASSA [Suspect]
     Active Substance: PATIROMER
     Indication: HYPERKALAEMIA
     Route: 048
     Dates: start: 20191009
  2. HYDROCO/APAP [Concomitant]
     Active Substance: ACETAMINOPHEN\HYDROCODONE
  3. ALPRAZOLAM. [Concomitant]
     Active Substance: ALPRAZOLAM

REACTIONS (2)
  - Product dose omission [Unknown]
  - No adverse event [Unknown]

NARRATIVE: CASE EVENT DATE: 201910
